FAERS Safety Report 22019132 (Version 1)
Quarter: 2023Q1

REPORT INFORMATION
  Report Type: Spontaneous
  Country: CN (occurrence: CN)
  Receive Date: 20230222
  Receipt Date: 20230222
  Transmission Date: 20230418
  Serious: Yes (Hospitalization)
  Sender: FDA-Public Use
  Company Number: CN-BoehringerIngelheim-2023-BI-219270

PATIENT
  Age: 90 Year
  Sex: Male
  Weight: 40 kg

DRUGS (2)
  1. ALTEPLASE [Suspect]
     Active Substance: ALTEPLASE
     Indication: Cerebral infarction
     Dosage: IV BOLUS WITHIN 1 MINUTE
     Route: 040
     Dates: start: 20230130, end: 20230130
  2. ALTEPLASE [Suspect]
     Active Substance: ALTEPLASE
     Dosage: IVGTT WITHIN 1 HOUR
     Route: 042
     Dates: start: 20230130, end: 20230130

REACTIONS (4)
  - Cerebral haemorrhage [Recovering/Resolving]
  - Headache [Recovering/Resolving]
  - Heart rate increased [Recovering/Resolving]
  - Off label use [Unknown]

NARRATIVE: CASE EVENT DATE: 20230130
